FAERS Safety Report 22398466 (Version 1)
Quarter: 2023Q2

REPORT INFORMATION
  Report Type: Spontaneous
  Country: MX (occurrence: MX)
  Receive Date: 20230602
  Receipt Date: 20230602
  Transmission Date: 20230721
  Serious: Yes (Death)
  Sender: FDA-Public Use
  Company Number: MX-STRIDES ARCOLAB LIMITED-2023SP008264

PATIENT

DRUGS (15)
  1. METHOTREXATE [Suspect]
     Active Substance: METHOTREXATE
     Indication: B-cell type acute leukaemia
     Dosage: 15 MILLIGRAM (TRIPLE INTRATHECAL THERAPY ON DAYS 8, 15, 22 AND 29) (INDUCTION)
     Route: 037
  2. METHOTREXATE [Suspect]
     Active Substance: METHOTREXATE
     Dosage: 100 MG/M2 ON DAYS 10, 20, 30, 40
     Route: 065
  3. METHOTREXATE [Suspect]
     Active Substance: METHOTREXATE
     Dosage: 15 MILLIGRAM (TRIPLE INTRATHECAL ON DAYS 10 AND 30)
     Route: 037
  4. PREDNISOLONE [Suspect]
     Active Substance: PREDNISOLONE
     Indication: B-cell type acute leukaemia
     Dosage: 60 MILLIGRAM/SQ. METER (ON DAYS 1-29) (INDUCTION)
     Route: 048
  5. CYTARABINE [Suspect]
     Active Substance: CYTARABINE
     Indication: B-cell type acute leukaemia
     Dosage: 50 MILLIGRAM (TRIPLE INTRATHECAL THERAPY ON DAYS 8, 15, 22 AND 29)
     Route: 037
  6. CYTARABINE [Suspect]
     Active Substance: CYTARABINE
     Dosage: 50 MILLIGRAM (TRIPLE INTRATHECAL THERAPY ON DAYS 10 AND 30) (CONSOLIDATION)
     Route: 037
  7. HYDROCORTISONE [Suspect]
     Active Substance: HYDROCORTISONE
     Indication: B-cell type acute leukaemia
     Dosage: 37.5 MILLIGRAM (TRIPLE INTRATHECAL THERAPY ON DAYS 8, 15, 22 AND 29)
     Route: 037
  8. HYDROCORTISONE [Suspect]
     Active Substance: HYDROCORTISONE
     Dosage: 37.5 MILLIGRAM (TRIPLE INTRATHECAL THERAPY ON DAYS 10 AND 30)
     Route: 037
  9. ASPARAGINASE [Suspect]
     Active Substance: ASPARAGINASE
     Indication: B-cell type acute leukaemia
     Dosage: 6,000 UI/M 2 ON DAYS 8, 10, 12, 15, 17, 19, 22, 24, 26 (INDUCTION)
     Route: 030
  10. ASPARAGINASE [Suspect]
     Active Substance: ASPARAGINASE
     Dosage: 6,000 UI/M 2 ON DAYS 1, 11, 21, 31, 41 (CONSOLIDATION)
     Route: 030
  11. MITOXANTRONE [Suspect]
     Active Substance: MITOXANTRONE HYDROCHLORIDE
     Indication: B-cell type acute leukaemia
     Dosage: 6 MILLIGRAM/SQ. METER (ON DAYS 8, 15, 22, 29) (INDUCTION)
     Route: 042
  12. RITUXIMAB [Suspect]
     Active Substance: RITUXIMAB
     Indication: B-cell type acute leukaemia
     Dosage: 375 MILLIGRAM/SQ. METER (ON DAYS 8-22) (INDUCTION)
     Route: 042
  13. VINCRISTINE [Suspect]
     Active Substance: VINCRISTINE
     Indication: B-cell type acute leukaemia
     Dosage: 1.4 MILLIGRAM/SQ. METER (ON DAYS 8, 15, 22 AND 29) (INDUCTION)
     Route: 042
  14. VINCRISTINE [Suspect]
     Active Substance: VINCRISTINE
     Dosage: 1.4 MILLIGRAM/SQ. METER (ON DAYS 10-30) (CONSOLIDATION)
     Route: 042
  15. CYCLOPHOSPHAMIDE [Suspect]
     Active Substance: CYCLOPHOSPHAMIDE
     Indication: B-cell type acute leukaemia
     Dosage: 1000 MG/M2 ON DAY 1 (CONSOLIDATION)
     Route: 042

REACTIONS (1)
  - Sudden death [Fatal]
